FAERS Safety Report 24620195 (Version 1)
Quarter: 2024Q4

REPORT INFORMATION
  Report Type: Spontaneous
  Country: US (occurrence: US)
  Receive Date: 20241114
  Receipt Date: 20241114
  Transmission Date: 20250115
  Serious: No
  Sender: CURRAX PHARMACEUTICALS
  Company Number: US-CURRAX PHARMACEUTICALS LLC-US-2024CUR003403

PATIENT
  Age: 40 Year
  Sex: Female
  Weight: 81.633 kg

DRUGS (4)
  1. CONTRAVE [Suspect]
     Active Substance: BUPROPION HYDROCHLORIDE\NALTREXONE HYDROCHLORIDE
     Indication: Weight control
     Dosage: STRENGTH: 8/90 MG, STARTING MONTH: 1 TAB DAILY
     Route: 048
     Dates: start: 20240501, end: 20240507
  2. CONTRAVE [Suspect]
     Active Substance: BUPROPION HYDROCHLORIDE\NALTREXONE HYDROCHLORIDE
     Dosage: STRENGTH: 8/90 MG, 1 TWICE DAILY
     Route: 048
     Dates: start: 20240508, end: 20240514
  3. CONTRAVE [Suspect]
     Active Substance: BUPROPION HYDROCHLORIDE\NALTREXONE HYDROCHLORIDE
     Dosage: STRENGTH: 8/90 MG, 2 IN THE AM AND 1 IN THE PM
     Route: 048
     Dates: start: 20240515, end: 20240521
  4. CONTRAVE [Suspect]
     Active Substance: BUPROPION HYDROCHLORIDE\NALTREXONE HYDROCHLORIDE
     Dosage: STRENGTH: 8/90 MG, 2 TWICE DAILY
     Route: 048
     Dates: start: 20240522, end: 20240712

REACTIONS (7)
  - Hyperhidrosis [Unknown]
  - Hot flush [Unknown]
  - Headache [Unknown]
  - Nausea [Unknown]
  - Dry mouth [Unknown]
  - Dizziness [Unknown]
  - Thirst [Unknown]

NARRATIVE: CASE EVENT DATE: 20240501
